FAERS Safety Report 10628434 (Version 1)
Quarter: 2014Q4

REPORT INFORMATION
  Report Type: Spontaneous
  Country: US (occurrence: None)
  Receive Date: 20141203
  Receipt Date: 20141203
  Transmission Date: 20150529
  Serious: No
  Sender: FDA-Public Use
  Company Number: None

PATIENT
  Age: 67 Year
  Sex: Female
  Weight: 99.79 kg

DRUGS (1)
  1. LOSARTAN AND HYDROCHLOROTHIAZIDE [Suspect]
     Active Substance: HYDROCHLOROTHIAZIDE\LOSARTAN POTASSIUM
     Dosage: 100-25MG ONCE DAILY MOUTH
     Route: 048
     Dates: start: 20140423

REACTIONS (1)
  - Skin discolouration [None]

NARRATIVE: CASE EVENT DATE: 20140423
